FAERS Safety Report 4775017-8 (Version None)
Quarter: 2005Q3

REPORT INFORMATION
  Report Type: 
  Country: None (occurrence: None)
  Receive Date: 20050920
  Receipt Date: 20050906
  Transmission Date: 20060218
  Serious: Yes (Hospitalization)
  Sender: FDA-Public Use
  Company Number: 05ITY0182

PATIENT
  Age: 55 Year
  Sex: Male

DRUGS (6)
  1. AGGRASTAT [Suspect]
     Indication: ACUTE CORONARY SYNDROME
     Dosage: 12.5 MCG QD
     Dates: start: 20050822, end: 20050822
  2. ASPIRIN [Concomitant]
  3. ATORVASTATIN CALCIUM (ATORVASTATIN CALCIUM) (UNKNOWN) [Concomitant]
  4. INSULIN (INSULIN) (UNKNOWN) [Concomitant]
  5. NADROPARIN CALCIUM (NADROPARIN CALCIUM) (UNKNOWN) [Concomitant]
  6. RABEPRAZOLE SODIUM (RABEPRAZOLE SODIUM) (UNKNOWN) [Concomitant]

REACTIONS (6)
  - CHILLS [None]
  - ERYTHEMA [None]
  - HAEMOLYSIS [None]
  - LIVER FUNCTION TEST ABNORMAL [None]
  - PYREXIA [None]
  - THROMBOCYTOPENIA [None]
